FAERS Safety Report 8239412-7 (Version None)
Quarter: 2012Q1

REPORT INFORMATION
  Report Type: 
  Country: None (occurrence: None)
  Receive Date: 20120328
  Receipt Date: 20120323
  Transmission Date: 20120608
  Serious: Yes (Hospitalization, Other)
  Sender: FDA-Public Use
  Company Number: US-BAYER-2012-029562

PATIENT
  Age: 33 Year
  Sex: Female

DRUGS (6)
  1. YASMIN [Suspect]
     Indication: ENDOMETRIOSIS
  2. IBUPROFEN (ADVIL) [Concomitant]
     Indication: ARTHRALGIA
     Route: 048
  3. FAMOTIDINE [Concomitant]
  4. YASMIN [Suspect]
     Indication: MENOPAUSAL SYMPTOMS
  5. LORAZEPAM [Concomitant]
  6. FAMOTIDINE [Concomitant]

REACTIONS (1)
  - PULMONARY EMBOLISM [None]
